FAERS Safety Report 19893573 (Version 3)
Quarter: 2022Q1

REPORT INFORMATION
  Report Type: Spontaneous
  Country: US (occurrence: US)
  Receive Date: 20210929
  Receipt Date: 20220119
  Transmission Date: 20220423
  Serious: Yes (Other)
  Sender: FDA-Public Use
  Company Number: US-TORRENT-00011261

PATIENT
  Age: 68 Year
  Sex: Female
  Weight: 56 kg

DRUGS (1)
  1. ITRACONAZOLE [Suspect]
     Active Substance: ITRACONAZOLE
     Indication: Fungal infection
     Dosage: 100 MG CAPSULES TO BE TAKEN AT A DOSAGE OF 2 PER DAY (100 MG TWICE A DAY)

REACTIONS (3)
  - Hypersensitivity [Recovering/Resolving]
  - Urticaria [Recovered/Resolved]
  - Lip swelling [Recovered/Resolved]
